FAERS Safety Report 20127271 (Version 1)
Quarter: 2021Q4

REPORT INFORMATION
  Report Type: Spontaneous
  Country: BR (occurrence: BR)
  Receive Date: 20211129
  Receipt Date: 20211129
  Transmission Date: 20220303
  Serious: Yes (Hospitalization, Other)
  Sender: FDA-Public Use
  Company Number: BR-SA-SAC20211127000661

PATIENT
  Age: 43 Year
  Sex: Female
  Weight: 105 kg

DRUGS (6)
  1. LANTUS SOLOSTAR [Suspect]
     Active Substance: INSULIN GLARGINE
     Indication: Type 2 diabetes mellitus
     Dosage: UNK UNK, Q12H
     Route: 058
     Dates: start: 2020
  2. INSULIN BEEF [Concomitant]
     Active Substance: INSULIN BEEF
     Indication: Type 2 diabetes mellitus
     Dosage: 20 IU AT 6:00 AM, 20 IU AT 8:00 AM, 23 IU AT NOON, 16 IU AT 6:00 PM20 IU AT 6:00 AM, 20 IU AT 8:00 A
     Route: 058
     Dates: start: 2019
  3. CODEINE [Concomitant]
     Active Substance: CODEINE
     Indication: Back pain
     Dosage: UNK UNK, Q8H
     Route: 048
  4. DIPYRONE [Concomitant]
     Active Substance: DIPYRONE
     Indication: Back pain
     Dosage: UNK UNK, Q8H
     Route: 048
  5. GLICLAZIDE [Concomitant]
     Active Substance: GLICLAZIDE
     Indication: Type 2 diabetes mellitus
     Dosage: UNK UNK, QD
     Route: 048
     Dates: start: 2007
  6. METFORMIN [Concomitant]
     Active Substance: METFORMIN HYDROCHLORIDE
     Indication: Type 2 diabetes mellitus
     Dosage: UNK UNK, Q12H
     Route: 048
     Dates: start: 2007

REACTIONS (4)
  - Diabetic metabolic decompensation [Unknown]
  - COVID-19 [Unknown]
  - Diabetes mellitus inadequate control [Unknown]
  - Inappropriate schedule of product administration [Unknown]

NARRATIVE: CASE EVENT DATE: 20200101
